FAERS Safety Report 9276957 (Version 2)
Quarter: 2013Q2

REPORT INFORMATION
  Report Type: Spontaneous
  Country: FR (occurrence: None)
  Receive Date: 20130501
  Receipt Date: 20130606
  Transmission Date: 20140414
  Serious: Yes (Hospitalization)
  Sender: FDA-Public Use
  Company Number: AG-2013-1488

PATIENT
  Age: 85 Year
  Sex: Male
  Weight: 61 kg

DRUGS (13)
  1. CHLORAMBUCIL [Suspect]
     Indication: PRODUCT USED FOR UNKNOWN INDICATION
  2. RITUXIMAB [Suspect]
     Indication: B-CELL LYMPHOMA
     Route: 042
     Dates: start: 20121015
  3. RHUPH20 (RITUXIMAB) [Suspect]
     Indication: B-CELL LYMPHOMA
     Route: 058
     Dates: start: 20121105
  4. DESLORATADINE (DESLORATADINE) (UNK) [Concomitant]
  5. HYDROXYZINE HYDROCHLORIDE (HYDROXYZINE) (UNK) [Concomitant]
  6. LOPERAMIDE (LOPERAMIDE) (UNK) [Concomitant]
  7. PARACETAMOL (PARACETAMOL) (UNKNOWN) [Concomitant]
  8. DIOSMECTITE (DIOSMECTITE) (UNKNOWN) [Concomitant]
  9. METRONIDAZOLE (METRONIDAZOLE) (UNKNOWN) [Concomitant]
  10. POLARAMINE (DEXCHLORPHENIRAMINE) UNK [Concomitant]
  11. PREDNISOLONE (PREDNISOLONE) (UNKNOWN) [Concomitant]
  12. SULFAMETHOXAZOLE AND TRIMETHOPRIM (SULFAMETHOXAZOLE AND TRIMETHOPRIM) (UNKNOWN) [Concomitant]
  13. FLAGYL (METHRONIDAZOLE) (UNKNOWN) [Concomitant]

REACTIONS (1)
  - Sepsis syndrome [None]
